FAERS Safety Report 4909198-X (Version None)
Quarter: 2006Q1

REPORT INFORMATION
  Report Type: 
  Country: None (occurrence: None)
  Receive Date: 20060209
  Receipt Date: 20060209
  Transmission Date: 20060701
  Serious: Yes (Other)
  Sender: FDA-Public Use
  Company Number: None

PATIENT
  Age: 64 Year
  Sex: Female
  Weight: 46.7205 kg

DRUGS (1)
  1. ZOMETA [Suspect]

REACTIONS (3)
  - RENAL FAILURE CHRONIC [None]
  - RENAL INJURY [None]
  - RENAL TUBULAR DISORDER [None]
